FAERS Safety Report 12256401 (Version 1)
Quarter: 2016Q2

REPORT INFORMATION
  Report Type: Spontaneous
  Country: US (occurrence: US)
  Receive Date: 20160412
  Receipt Date: 20160412
  Transmission Date: 20160815
  Serious: No
  Sender: FDA-Public Use
  Company Number: US-AUROBINDO-AUR-APL-2015-06465

PATIENT
  Age: 67 Year
  Sex: Male
  Weight: 113 kg

DRUGS (6)
  1. NUEDEXTA [Suspect]
     Active Substance: DEXTROMETHORPHAN HYDROBROMIDE\QUINIDINE SULFATE
     Indication: PRODUCT USED FOR UNKNOWN INDICATION
     Dosage: 2 DF, DAILY (20-10 MG)
     Route: 048
  2. SEROQUEL [Suspect]
     Active Substance: QUETIAPINE FUMARATE
     Indication: SLEEP DISORDER
     Dosage: 200 MG, AT BED TIME
     Route: 048
  3. VITAMINS WITH MINERALS [Suspect]
     Active Substance: MINERALS\VITAMINS
     Indication: ASTHENIA
     Dosage: UNK
     Route: 065
     Dates: start: 201504, end: 201504
  4. METFORMIN 500MG [Suspect]
     Active Substance: METFORMIN HYDROCHLORIDE
     Indication: DIABETES MELLITUS
     Dosage: 500 MG, TWO TIMES A DAY
     Route: 048
     Dates: start: 2014
  5. ARIPIPRAZOLE. [Suspect]
     Active Substance: ARIPIPRAZOLE
     Indication: PRODUCT USED FOR UNKNOWN INDICATION
     Dosage: UNK
     Route: 065
  6. ABILIFY [Suspect]
     Active Substance: ARIPIPRAZOLE
     Indication: MENTAL IMPAIRMENT
     Dosage: 200 MG, ONCE A DAY
     Route: 048

REACTIONS (1)
  - Limb discomfort [Unknown]
